FAERS Safety Report 10146116 (Version 1)
Quarter: 2014Q2

REPORT INFORMATION
  Report Type: Spontaneous
  Country: CN (occurrence: None)
  Receive Date: 20140429
  Receipt Date: 20140429
  Transmission Date: 20141212
  Serious: Yes (Death)
  Sender: FDA-Public Use
  Company Number: 2014P1003320

PATIENT
  Age: 4 Year
  Sex: Female

DRUGS (1)
  1. CEFOTAXIME [Suspect]

REACTIONS (1)
  - Anaphylactic shock [None]
